FAERS Safety Report 5245000-7 (Version None)
Quarter: 2007Q1

REPORT INFORMATION
  Report Type: 
  Country: None (occurrence: None)
  Receive Date: 20070221
  Receipt Date: 20070221
  Transmission Date: 20070707
  Serious: Yes (Other)
  Sender: FDA-Public Use
  Company Number: None

PATIENT
  Age: 71 Year
  Sex: Male
  Weight: 89.8122 kg

DRUGS (2)
  1. BACITRACIN OPHTHALMIC OINTMENT [Suspect]
     Dosage: UNKNOWN UNKNOWN TOPICAL
     Route: 061
     Dates: start: 20070130
  2. . [Concomitant]

REACTIONS (2)
  - PRURITUS GENERALISED [None]
  - RASH GENERALISED [None]
